FAERS Safety Report 21725616 (Version 1)
Quarter: 2022Q4

REPORT INFORMATION
  Report Type: Report from Study
  Country: DE (occurrence: None)
  Receive Date: 20221214
  Receipt Date: 20221214
  Transmission Date: 20230112
  Serious: Yes (Hospitalization)
  Sender: FDA-Public Use
  Company Number: DE-ROCHE-3238793

PATIENT
  Age: 63 Year
  Sex: Female
  Weight: 86 kg

DRUGS (10)
  1. ATEZOLIZUMAB [Suspect]
     Active Substance: ATEZOLIZUMAB
     Indication: Triple negative breast cancer
     Route: 041
     Dates: start: 20220705
  2. PACLITAXEL [Suspect]
     Active Substance: PACLITAXEL
     Indication: Triple negative breast cancer
     Route: 042
     Dates: start: 20220810
  3. CYCLOPHOSPHAMIDE [Suspect]
     Active Substance: CYCLOPHOSPHAMIDE
     Indication: Triple negative breast cancer
     Route: 042
     Dates: start: 20221102
  4. CARBOPLATIN [Suspect]
     Active Substance: CARBOPLATIN
     Indication: Triple negative breast cancer
     Route: 042
     Dates: start: 20220803
  5. EPIRUBICIN [Suspect]
     Active Substance: EPIRUBICIN
     Indication: Triple negative breast cancer
     Route: 042
     Dates: start: 20221102
  6. LERCANIDIPINE [Concomitant]
     Active Substance: LERCANIDIPINE
  7. PREDNISOLONE [Concomitant]
     Active Substance: PREDNISOLONE
  8. NISOLDIPINE [Concomitant]
     Active Substance: NISOLDIPINE
  9. CLEMASTINE FUMARATE [Concomitant]
     Active Substance: CLEMASTINE FUMARATE
  10. SULFAMETHOXAZOLE\TRIMETHOPRIM [Concomitant]
     Active Substance: SULFAMETHOXAZOLE\TRIMETHOPRIM

REACTIONS (1)
  - Neutropenia [Recovered/Resolved]

NARRATIVE: CASE EVENT DATE: 20221108
